FAERS Safety Report 7535202-9 (Version None)
Quarter: 2011Q2

REPORT INFORMATION
  Report Type: 
  Country: None (occurrence: None)
  Receive Date: 20110609
  Receipt Date: 20090420
  Transmission Date: 20111010
  Serious: Yes (Other)
  Sender: FDA-Public Use
  Company Number: PHHY2009JP14811

PATIENT
  Sex: Male
  Weight: 65 kg

DRUGS (5)
  1. TOCOPHERYL NICOTINATE [Concomitant]
     Dosage: 300 MG, UNK
     Route: 048
     Dates: start: 20080322
  2. ZYRTEC [Concomitant]
     Dosage: 10 MG, UNK
     Route: 048
     Dates: start: 20080703
  3. VALSARTAN [Suspect]
     Dosage: 40 MG, QD
     Route: 048
     Dates: start: 20081121
  4. PANTOSIN [Concomitant]
     Dosage: 600 MG, UNK
     Route: 048
     Dates: start: 20080322
  5. VALSARTAN [Suspect]
     Indication: HYPERTENSION
     Dosage: 20 MG, QD
     Route: 048
     Dates: start: 20080311, end: 20081120

REACTIONS (2)
  - DERMATITIS ALLERGIC [None]
  - CONTRAST MEDIA ALLERGY [None]
